FAERS Safety Report 15563018 (Version 2)
Quarter: 2019Q1

REPORT INFORMATION
  Report Type: Report from Study
  Country: IE (occurrence: IE)
  Receive Date: 20181029
  Receipt Date: 20190123
  Transmission Date: 20190417
  Serious: Yes (Hospitalization)
  Sender: FDA-Public Use
  Company Number: IE-JNJFOC-20180722089

PATIENT
  Age: 81 Year
  Sex: Male

DRUGS (6)
  1. IMBRUVICA [Suspect]
     Active Substance: IBRUTINIB
     Indication: LYMPHOPROLIFERATIVE DISORDER
     Route: 048
     Dates: start: 20181022
  2. ULTIBRO [Concomitant]
     Active Substance: GLYCOPYRRONIUM\INDACATEROL
     Route: 050
  3. RAMIPRIL. [Concomitant]
     Active Substance: RAMIPRIL
     Route: 050
  4. DOMERID [Concomitant]
     Route: 050
  5. FUROSEMIDE. [Concomitant]
     Active Substance: FUROSEMIDE
     Route: 050
  6. IMBRUVICA [Suspect]
     Active Substance: IBRUTINIB
     Indication: LYMPHOPROLIFERATIVE DISORDER
     Route: 048
     Dates: start: 20171122, end: 201809

REACTIONS (5)
  - Product use in unapproved indication [Unknown]
  - Pleural effusion [Recovered/Resolved]
  - Epistaxis [Unknown]
  - Off label use [Unknown]
  - Tachycardia [Recovered/Resolved]

NARRATIVE: CASE EVENT DATE: 201809
